FAERS Safety Report 16816439 (Version 1)
Quarter: 2019Q3

REPORT INFORMATION
  Report Type: Spontaneous
  Country: US (occurrence: US)
  Receive Date: 20190917
  Receipt Date: 20190917
  Transmission Date: 20191005
  Serious: No
  Sender: FDA-Public Use
  Company Number: US-RECKITT BENCKISER HEALTHCARE INT LIMITED-RB-83309-2019

PATIENT
  Age: 41 Year
  Sex: Male

DRUGS (1)
  1. GUAIFENSIN [Suspect]
     Active Substance: GUAIFENESIN
     Indication: SINUSITIS
     Dosage: UNK, QD
     Route: 048

REACTIONS (2)
  - Product use in unapproved indication [Unknown]
  - Incorrect product administration duration [Unknown]
